FAERS Safety Report 9838041 (Version 1)
Quarter: 2013Q4

REPORT INFORMATION
  Report Type: Spontaneous
  Country: US (occurrence: None)
  Receive Date: 20131205
  Receipt Date: 20131205
  Transmission Date: 20140711
  Serious: Yes (Other)
  Sender: FDA-Public Use
  Company Number: 163-POMAL-13103388

PATIENT
  Age: 54 Year
  Sex: Female
  Weight: 73.48 kg

DRUGS (12)
  1. POMALYST [Suspect]
     Indication: PLASMA CELL MYELOMA
     Dosage: 3 MG, 21 IN 21 D, PO
     Route: 048
     Dates: start: 20130919
  2. DETROL (TOLTERODINE L-TARTRATE) [Concomitant]
  3. SERTRALINE HCL (SERTRALINE HYDROCHLORIDE) [Concomitant]
  4. DEXAMETHASONE (DEXAMETHASONE) [Concomitant]
  5. HYDROMORPHONE HCL (HYDROMORPHONE HYDROCHLORIDE) [Concomitant]
  6. SYNTHROID (LEVOTHYROXINE SODIUM) [Concomitant]
  7. FERROUS SULFATE (FERROUS SULFATE) [Concomitant]
  8. PREVACID (LANSOPRAZOLE) [Concomitant]
  9. VITAMIN B COMPLEX (B-KOMPLEX ^LECIVA^) [Concomitant]
  10. CALCIUM (CALCIUM) [Concomitant]
  11. SPIRIVA (TIOTROPIUM BROMIDE) (TIOTROPIUM BROMIDE) [Concomitant]
  12. VELCADE (BORTEZOMIB) [Concomitant]

REACTIONS (2)
  - Red blood cell count decreased [None]
  - Sinusitis [None]
